FAERS Safety Report 11048479 (Version 1)
Quarter: 2015Q2

REPORT INFORMATION
  Report Type: Spontaneous
  Country: US (occurrence: US)
  Receive Date: 20150420
  Receipt Date: 20150420
  Transmission Date: 20150821
  Serious: No
  Sender: FDA-Public Use
  Company Number: US-BIOGENIDEC-2015BI050308

PATIENT
  Sex: Female

DRUGS (10)
  1. LEVOTHROID [Concomitant]
     Active Substance: LEVOTHYROXINE SODIUM
  2. LAMOTRIGINE. [Concomitant]
     Active Substance: LAMOTRIGINE
  3. NORCO [Concomitant]
     Active Substance: ACETAMINOPHEN\HYDROCODONE BITARTRATE
  4. GABAPENTIN. [Concomitant]
     Active Substance: GABAPENTIN
  5. TRAZODONE HCI [Concomitant]
  6. SUFENTA [Concomitant]
     Active Substance: SUFENTANIL CITRATE
  7. TECFIDERA [Suspect]
     Active Substance: DIMETHYL FUMARATE
     Indication: MULTIPLE SCLEROSIS
     Route: 048
  8. LOVASTATIN. [Concomitant]
     Active Substance: LOVASTATIN
  9. VENLAFAXINE HCI [Concomitant]
  10. LIOTHYRONINE SODIUM. [Concomitant]
     Active Substance: LIOTHYRONINE SODIUM

REACTIONS (1)
  - Muscle spasms [Not Recovered/Not Resolved]
